FAERS Safety Report 8230698-1 (Version None)
Quarter: 2012Q1

REPORT INFORMATION
  Report Type: 
  Country: None (occurrence: None)
  Receive Date: 20120323
  Receipt Date: 20120314
  Transmission Date: 20120608
  Serious: Yes (Other)
  Sender: FDA-Public Use
  Company Number: BR-JNJFOC-20120308148

PATIENT
  Age: 46 Year
  Sex: Male
  Weight: 75 kg

DRUGS (6)
  1. ENALAPRIL [Concomitant]
     Indication: HYPERTENSION
     Route: 065
     Dates: start: 20040101
  2. AMLODIPINE [Concomitant]
     Route: 065
     Dates: start: 20080101
  3. OMEPRAZOLE [Concomitant]
     Route: 065
     Dates: start: 20040101
  4. NAPROXEN [Concomitant]
     Route: 065
     Dates: start: 20080101
  5. CYCLOBENZAPRINE HCL [Concomitant]
     Route: 065
     Dates: start: 20080101
  6. REMICADE [Suspect]
     Indication: ANKYLOSING SPONDYLITIS
     Route: 042
     Dates: start: 20080101

REACTIONS (3)
  - BLOOD CREATINE PHOSPHOKINASE INCREASED [None]
  - MYALGIA [None]
  - FATIGUE [None]
